FAERS Safety Report 4937440-8 (Version None)
Quarter: 2006Q1

REPORT INFORMATION
  Report Type: 
  Country: None (occurrence: None)
  Receive Date: 20060309
  Receipt Date: 20060216
  Transmission Date: 20060701
  Serious: Yes (Death, Hospitalization)
  Sender: FDA-Public Use
  Company Number: PHBS2006JP02544

PATIENT
  Age: 85 Year
  Weight: 57 kg

DRUGS (3)
  1. AREDIA [Suspect]
     Indication: METASTASES TO BONE
     Dosage: 90 MG, ONCE/SINGLE
     Route: 041
     Dates: start: 20050720, end: 20050720
  2. AREDIA [Suspect]
     Dosage: 90 MG, ONCE/SINGLE
     Route: 041
     Dates: start: 20050919, end: 20050919
  3. AREDIA [Suspect]
     Dosage: 90 MG, ONCE/SINGLE
     Route: 041
     Dates: start: 20051012, end: 20051012

REACTIONS (7)
  - ABDOMINAL PAIN [None]
  - BLOOD CHLORIDE DECREASED [None]
  - BLOOD CREATININE INCREASED [None]
  - DEATH [None]
  - HYPERKALAEMIA [None]
  - HYPONATRAEMIA [None]
  - RENAL FAILURE [None]
